FAERS Safety Report 6977477-0 (Version None)
Quarter: 2010Q3

REPORT INFORMATION
  Report Type: 
  Country: None (occurrence: None)
  Receive Date: 20100910
  Receipt Date: 20100902
  Transmission Date: 20110219
  Serious: Yes (Hospitalization)
  Sender: FDA-Public Use
  Company Number: US-ABBOTT-10P-163-0668391-00

PATIENT
  Sex: Female
  Weight: 81.72 kg

DRUGS (9)
  1. HUMIRA [Suspect]
     Indication: RHEUMATOID ARTHRITIS
     Dates: start: 20050101, end: 20090101
  2. HUMIRA [Suspect]
     Indication: PSORIATIC ARTHROPATHY
  3. PREDNISONE [Concomitant]
     Indication: RHEUMATOID ARTHRITIS
  4. TOPAMAX [Concomitant]
     Indication: GRAND MAL CONVULSION
  5. OMEPRAZOLE [Concomitant]
     Indication: GASTROOESOPHAGEAL REFLUX DISEASE
  6. WELLBUTRIN XL [Concomitant]
     Indication: DEPRESSION
  7. FOLIC ACID [Concomitant]
     Indication: PRODUCT USED FOR UNKNOWN INDICATION
  8. METHOTREXATE [Concomitant]
     Indication: PRODUCT USED FOR UNKNOWN INDICATION
     Dosage: 1 INJECTION
  9. MS CONTIN [Concomitant]
     Indication: PAIN

REACTIONS (5)
  - BONE EROSION [None]
  - FUNGAL INFECTION [None]
  - IMPAIRED HEALING [None]
  - LOCALISED INFECTION [None]
  - RHEUMATOID ARTHRITIS [None]
